FAERS Safety Report 4774954-8 (Version None)
Quarter: 2005Q3

REPORT INFORMATION
  Report Type: 
  Country: None (occurrence: None)
  Receive Date: 20050920
  Receipt Date: 20050905
  Transmission Date: 20060218
  Serious: Yes (Death)
  Sender: FDA-Public Use
  Company Number: T05-SWI-03337-01

PATIENT
  Age: 72 Year
  Sex: Male

DRUGS (22)
  1. CIPRALEX (ESCITALOPRAM) [Suspect]
     Dosage: 5 MG QD PO
     Route: 048
     Dates: start: 20040226, end: 20040302
  2. CIPRALEX (ESCITALOPRAM) [Suspect]
     Dosage: 10 MG QD PO
     Route: 048
     Dates: start: 20040303, end: 20040324
  3. CIPRALEX (ESCITALOPRAM) [Concomitant]
     Dosage: 15 MG QD PO
     Route: 048
     Dates: start: 20040325, end: 20040411
  4. REMERON [Suspect]
     Dosage: 30 MG QD PO
     Route: 048
     Dates: start: 20040210, end: 20040215
  5. REMERON (MIRTAZEPINE) [Suspect]
     Dosage: 60 MG QD PO
     Route: 048
     Dates: start: 20040216, end: 20040411
  6. HALDOL [Suspect]
     Dosage: 3 MG QD PO
     Route: 048
     Dates: start: 20040210, end: 20040225
  7. HALDOL [Suspect]
     Dosage: 4 MG QD PO
     Route: 048
     Dates: start: 20040210, end: 20040225
  8. HALDOL [Suspect]
     Dosage: 2 MG QD PO
     Route: 048
     Dates: start: 20040226, end: 20040229
  9. HALDOL [Suspect]
     Dosage: 1 MG QD PO
     Route: 048
     Dates: start: 20040301, end: 20040307
  10. HALDOL [Suspect]
     Dosage: 2 MG QD PO
     Route: 048
     Dates: start: 20040329, end: 20040331
  11. HALDOL [Suspect]
     Dosage: 4 MG QD PO
     Route: 048
     Dates: start: 20040401, end: 20040411
  12. LORAZEPAM [Concomitant]
     Dosage: 1 MG QD PO
     Route: 048
     Dates: start: 20040208, end: 20040209
  13. LORAZEPAM [Suspect]
     Dosage: 3 MG QD PO
     Route: 048
     Dates: start: 20040210, end: 20040215
  14. LORAZEPAM [Suspect]
     Dosage: 2 MG QD PO
     Route: 048
     Dates: start: 20040216, end: 20040218
  15. LORAZEPAM [Suspect]
     Dosage: 1.5 MG QD PO
     Route: 048
     Dates: start: 20050219, end: 20050225
  16. LORAZEPAM [Suspect]
     Dosage: 0.5 MG QD PO
     Route: 048
     Dates: start: 20040226, end: 20040301
  17. LORAZEPAM [Suspect]
     Dosage: 1.5 MG QD PO
     Route: 048
     Dates: start: 20040329, end: 20040411
  18. ATORVASTATIN CALCIUM [Suspect]
     Dosage: 20 MG QD PO
     Route: 048
     Dates: end: 20040411
  19. PARAGAR [Concomitant]
  20. COSAAR (LOSARTAN POTASSIUM) [Concomitant]
  21. FLUOXETINE [Concomitant]
  22. DIAZEPAM [Concomitant]

REACTIONS (8)
  - ANXIETY [None]
  - COMPLETED SUICIDE [None]
  - DEPRESSIVE SYMPTOM [None]
  - INJURY ASPHYXIATION [None]
  - MORBID THOUGHTS [None]
  - MUTISM [None]
  - RESTLESSNESS [None]
  - SLEEP DISORDER [None]
